FAERS Safety Report 19942212 (Version 3)
Quarter: 2023Q2

REPORT INFORMATION
  Report Type: Report from Study
  Country: GB (occurrence: GB)
  Receive Date: 20211012
  Receipt Date: 20230424
  Transmission Date: 20230722
  Serious: Yes (Hospitalization)
  Sender: FDA-Public Use
  Company Number: GB-ABBVIE-21K-167-4112947-00

PATIENT
  Age: 65 Year
  Sex: Male

DRUGS (12)
  1. RISANKIZUMAB [Suspect]
     Active Substance: RISANKIZUMAB
     Indication: Psoriasis
     Route: 058
     Dates: start: 20201119
  2. DOVONEX [Concomitant]
     Active Substance: CALCIPOTRIENE
     Indication: Psoriasis
     Route: 061
     Dates: start: 20191213
  3. PERINDOPRIL [Concomitant]
     Active Substance: PERINDOPRIL
     Indication: Cardiac disorder
     Dosage: 2.50 MG
     Route: 048
     Dates: start: 20201004, end: 20210530
  4. PERINDOPRIL [Concomitant]
     Active Substance: PERINDOPRIL
     Indication: Cardiac disorder
     Dosage: 2.50 MG
     Route: 048
     Dates: start: 20201014
  5. MOMETASONE [Concomitant]
     Active Substance: MOMETASONE
     Indication: General symptom
     Dates: start: 20220614
  6. BETNOVATE [Concomitant]
     Active Substance: BETAMETHASONE
     Indication: Eczema
     Route: 061
     Dates: start: 20220118
  7. NEBIVOLOL [Concomitant]
     Active Substance: NEBIVOLOL
     Indication: Sepsis
     Dosage: 2.50 MG
     Route: 048
     Dates: start: 20220614, end: 20220628
  8. EPLERENONE [Concomitant]
     Active Substance: EPLERENONE
     Indication: Sepsis
     Route: 048
     Dates: start: 20220614
  9. CANDESARTAN CILEXETIL [Concomitant]
     Active Substance: CANDESARTAN CILEXETIL
     Indication: Cardiac disorder
     Route: 048
     Dates: start: 20210531
  10. CETIRIZINE [Concomitant]
     Active Substance: CETIRIZINE HYDROCHLORIDE
     Indication: General symptom
     Route: 048
     Dates: start: 20220614
  11. BISOPROLOL [Concomitant]
     Active Substance: BISOPROLOL
     Indication: Cardiac disorder
     Dosage: 2.50 MG
     Route: 048
     Dates: start: 20210531
  12. PIPERACILLIN SODIUM\TAZOBACTAM SODIUM [Concomitant]
     Active Substance: PIPERACILLIN SODIUM\TAZOBACTAM SODIUM
     Indication: Sepsis
     Dates: start: 20220609, end: 20220611

REACTIONS (4)
  - Dysuria [Recovered/Resolved]
  - Lethargy [Recovered/Resolved]
  - Diarrhoea [Recovered/Resolved]
  - Urinary tract infection [Recovered/Resolved]

NARRATIVE: CASE EVENT DATE: 20210529
